FAERS Safety Report 9025315 (Version 3)
Quarter: 2013Q4

REPORT INFORMATION
  Report Type: Spontaneous
  Country: US (occurrence: US)
  Receive Date: 20130122
  Receipt Date: 20131122
  Transmission Date: 20140711
  Serious: Yes (Hospitalization)
  Sender: FDA-Public Use
  Company Number: US-B.I. PHARMACEUTICALS,INC./RIDGEFIELD-2013-BI-00931BP

PATIENT
  Sex: Male
  Weight: 63.5 kg

DRUGS (11)
  1. PRADAXA [Suspect]
     Indication: CEREBROVASCULAR ACCIDENT PROPHYLAXIS
     Dates: start: 20101216, end: 20110123
  2. PRADAXA [Suspect]
     Indication: THROMBOSIS PROPHYLAXIS
  3. ZEBETA [Concomitant]
     Dates: end: 2011
  4. LISINOPRIL [Concomitant]
     Dates: start: 2005, end: 2011
  5. SIMVASTATIN [Concomitant]
     Dates: end: 2011
  6. BABY ASPIRIN [Concomitant]
     Dates: start: 2005, end: 2011
  7. AMIODARONE [Concomitant]
     Dates: start: 2010
  8. ATENOLOL [Concomitant]
  9. VITAMIN E [Concomitant]
  10. MULTI-VITAMIN [Concomitant]
  11. MULTAQ [Concomitant]
     Dates: end: 2011

REACTIONS (1)
  - Ischaemic stroke [Unknown]
